FAERS Safety Report 8101756-7 (Version None)
Quarter: 2012Q1

REPORT INFORMATION
  Report Type: 
  Country: None (occurrence: None)
  Receive Date: 20120131
  Receipt Date: 20120120
  Transmission Date: 20120608
  Serious: Yes (Other)
  Sender: FDA-Public Use
  Company Number: PHHY2011AR91299

PATIENT
  Sex: Female

DRUGS (9)
  1. TASIGNA [Suspect]
     Dosage: 400 MG, DAILY
     Route: 048
     Dates: start: 20110801
  2. TASIGNA [Suspect]
     Dosage: 800 MG DAILY
     Dates: start: 20110801
  3. TASIGNA [Suspect]
     Dosage: 600 MG, ON ONE DAY
     Route: 048
  4. DEXAMETHASONE [Concomitant]
     Dates: end: 20110901
  5. CETRILER [Concomitant]
  6. TASIGNA [Suspect]
     Dosage: 600 MG, DAILY
     Route: 048
     Dates: start: 20110801
  7. TASIGNA [Suspect]
     Dosage: 800 MG, DAILY
     Route: 048
  8. TASIGNA [Suspect]
     Dosage: 800 MG, DAILY
     Route: 048
     Dates: start: 20120103
  9. TASIGNA [Suspect]
     Indication: CHRONIC MYELOID LEUKAEMIA
     Dosage: 800 MG, DAILY
     Route: 048
     Dates: start: 20110701

REACTIONS (11)
  - JOINT SWELLING [None]
  - RASH GENERALISED [None]
  - BLOOD TRIGLYCERIDES INCREASED [None]
  - AGITATION [None]
  - PNEUMOTHORAX [None]
  - DERMATITIS ALLERGIC [None]
  - FATIGUE [None]
  - PULMONARY OEDEMA [None]
  - HAIR TEXTURE ABNORMAL [None]
  - PRURITUS [None]
  - PERICARDIAL EFFUSION [None]
